FAERS Safety Report 16520610 (Version 1)
Quarter: 2019Q3

REPORT INFORMATION
  Report Type: Spontaneous
  Country: CA (occurrence: CA)
  Receive Date: 20190702
  Receipt Date: 20190702
  Transmission Date: 20191004
  Serious: Yes (Death, Hospitalization, Congenital Anomaly, Other)
  Sender: FDA-Public Use
  Company Number: CA-TEVA-2019-CA-1070741

PATIENT
  Sex: Female

DRUGS (1)
  1. PAROXETINE HYDROCHLORIDE. [Suspect]
     Active Substance: PAROXETINE HYDROCHLORIDE
     Indication: PERINATAL DEPRESSION
     Route: 064

REACTIONS (10)
  - Stridor [Fatal]
  - Brain injury [Fatal]
  - Congenital visual acuity reduced [Fatal]
  - Foetal exposure during pregnancy [Fatal]
  - Dyskinesia [Fatal]
  - Hypoglycaemia [Fatal]
  - Developmental delay [Fatal]
  - Hypoxic-ischaemic encephalopathy [Fatal]
  - Joint dislocation [Fatal]
  - Cardio-respiratory arrest [Fatal]
